FAERS Safety Report 5563534-2 (Version None)
Quarter: 2007Q4

REPORT INFORMATION
  Report Type: 
  Country: None (occurrence: None)
  Receive Date: 20071217
  Receipt Date: 20070614
  Transmission Date: 20080405
  Serious: No
  Sender: FDA-Public Use
  Company Number: US-ASTRAZENECA-2007UW14224

PATIENT
  Age: 68 Year
  Sex: Female
  Weight: 69.4 kg

DRUGS (4)
  1. CRESTOR [Suspect]
     Indication: BLOOD CHOLESTEROL INCREASED
     Route: 048
     Dates: start: 20050101
  2. EVISTA [Concomitant]
  3. ASPIRIN [Concomitant]
  4. VIACTIV [Concomitant]

REACTIONS (2)
  - MUSCLE SPASMS [None]
  - PALPITATIONS [None]
